FAERS Safety Report 7232313-2 (Version None)
Quarter: 2011Q1

REPORT INFORMATION
  Report Type: 
  Country: None (occurrence: None)
  Receive Date: 20110106
  Receipt Date: 20101221
  Transmission Date: 20110831
  Serious: Yes (Hospitalization)
  Sender: FDA-Public Use
  Company Number: 023440

PATIENT
  Sex: Male

DRUGS (9)
  1. MOBIC [Suspect]
     Indication: RHEUMATOID ARTHRITIS
     Dosage: (15 MG, 10MG AND 5 MG ORAL)
     Route: 048
     Dates: start: 20060427
  2. KETOPROFEN [Concomitant]
  3. PREDNISOLONE [Concomitant]
  4. CERTOLIZUMAB PEGOL (CERTOLIZUMAB PEGOL) [Suspect]
     Indication: RHEUMATOID ARTHRITIS
     Dosage: (200 MG 1X/2 WEEKS SUBCUTANEOUS)
     Route: 058
     Dates: start: 20091015, end: 20091126
  5. CERTOLIZUMAB PEGOL (CERTOLIZUMAB PEGOL) [Suspect]
     Indication: RHEUMATOID ARTHRITIS
     Dosage: (200 MG 1X/2 WEEKS SUBCUTANEOUS)
     Route: 058
     Dates: start: 20101221
  6. PREDNISOLONE [Suspect]
     Indication: RHEUMATOID ARTHRITIS
     Dosage: (3.5 MG ORAL)
     Route: 048
     Dates: start: 20101109
  7. SALAZOSULFAPYRIDINE (SALAZOSULFAPYRIDINE ) [Suspect]
     Indication: RHEUMATOID ARTHRITIS
     Dosage: (500 MG ORAL)
     Route: 048
     Dates: start: 20070821
  8. PELEX /00413001/ (PELEX (NON-PYRINE COLD PREPARATION)) (NOT SPECIFIED) [Suspect]
     Indication: NASOPHARYNGITIS
     Dosage: (3 MG ORAL)
     Route: 048
     Dates: start: 20101126
  9. FAMOTIDINE [Concomitant]

REACTIONS (2)
  - NASOPHARYNGITIS [None]
  - UPPER GASTROINTESTINAL HAEMORRHAGE [None]
